FAERS Safety Report 5443163-1 (Version None)
Quarter: 2007Q3

REPORT INFORMATION
  Report Type: 
  Country: None (occurrence: None)
  Receive Date: 20070730
  Receipt Date: 20070206
  Transmission Date: 20080115
  Serious: Yes (Other)
  Sender: FDA-Public Use
  Company Number: 233657

PATIENT
  Age: 66 Year
  Sex: Female

DRUGS (1)
  1. RITUXAN [Suspect]
     Indication: NON-HODGKIN'S LYMPHOMA
     Dosage: 712 MG, 1/WEEK,
     Dates: start: 20060101, end: 20070101

REACTIONS (1)
  - B-CELL LYMPHOMA [None]
